FAERS Safety Report 4434122-6 (Version None)
Quarter: 2004Q3

REPORT INFORMATION
  Report Type: 
  Country: None (occurrence: None)
  Receive Date: 20040825
  Receipt Date: 20040812
  Transmission Date: 20050211
  Serious: Yes (Hospitalization)
  Sender: FDA-Public Use
  Company Number: 2004055752

PATIENT
  Age: 71 Year
  Sex: Female

DRUGS (12)
  1. AMLODIPINE [Suspect]
     Indication: ILL-DEFINED DISORDER
     Dosage: 10 MG (1 IN 1 D), ORAL
     Route: 048
     Dates: end: 20040610
  2. ATORVASTATIN CALCIUM [Suspect]
     Indication: ILL-DEFINED DISORDER
     Dosage: 20 MG (1 IN 1 D), ORAL
     Route: 048
  3. ZOLOFT [Suspect]
     Indication: ILL-DEFINED DISORDER
     Dosage: 20 MG (1 IN 1 D), ORAL
     Route: 048
     Dates: end: 20040610
  4. FOSINOPRIL (FOSINORPIL) [Suspect]
     Indication: ILL-DEFINED DISORDER
     Dosage: 20 MG (1 IN 1 D), ORAL
     Route: 048
     Dates: end: 20040610
  5. VALPROMIDE (VALPROMIDE) [Suspect]
     Indication: ILL-DEFINED DISORDER
     Dosage: 600 MG (300 MG, 1 IN 1 D), ORAL
     Route: 048
     Dates: end: 20040610
  6. INDAPAMIDE [Suspect]
     Indication: ILL-DEFINED DISORDER
     Dosage: 1.5 MG (1.5 MG, 1 IN 1 D), ORAL
     Route: 048
     Dates: end: 20040610
  7. ALPRAZOLAM [Concomitant]
  8. POTASSIUM CHLORIDE [Concomitant]
  9. CYAMEMAZINE (CYAMEMAZINE) [Concomitant]
  10. ZOPICLOE (ZOPICLONE) [Concomitant]
  11. LEVOTHYROXINE SODIUM [Concomitant]
  12. ACETYLSALICYLIC ACID SRT [Concomitant]

REACTIONS (3)
  - CHOLELITHIASIS [None]
  - PANCREATITIS ACUTE [None]
  - PANCREATITIS NECROTISING [None]
